FAERS Safety Report 21877131 (Version 1)
Quarter: 2023Q1

REPORT INFORMATION
  Report Type: Spontaneous
  Country: None (occurrence: GB)
  Receive Date: 20230118
  Receipt Date: 20230118
  Transmission Date: 20230417
  Serious: Yes (Hospitalization)
  Sender: FDA-Public Use
  Company Number: GB-Therakind Limited-2136823

PATIENT
  Age: 53 Year
  Sex: Female

DRUGS (2)
  1. METHOTREXATE [Suspect]
     Active Substance: METHOTREXATE
     Indication: Product used for unknown indication
  2. ABATACEPT [Suspect]
     Active Substance: ABATACEPT
     Dates: start: 20161017

REACTIONS (11)
  - Tremor [Recovering/Resolving]
  - Musculoskeletal stiffness [Unknown]
  - Urinary tract infection [Recovering/Resolving]
  - Nasopharyngitis [Recovering/Resolving]
  - Liver function test abnormal [Recovered/Resolved]
  - Product dose omission issue [Unknown]
  - Chills [Recovering/Resolving]
  - Lower respiratory tract infection [Unknown]
  - Pain [Recovering/Resolving]
  - Malaise [Unknown]
  - Infection [Unknown]
